FAERS Safety Report 7799021-0 (Version None)
Quarter: 2011Q4

REPORT INFORMATION
  Report Type: 
  Country: None (occurrence: None)
  Receive Date: 20111006
  Receipt Date: 20110930
  Transmission Date: 20120403
  Serious: Yes (Hospitalization)
  Sender: FDA-Public Use
  Company Number: US-GILEAD-2011-0044443

PATIENT

DRUGS (3)
  1. LETAIRIS [Suspect]
     Indication: PULMONARY HYPERTENSION
     Dosage: 10 MG, UNK
     Route: 048
     Dates: start: 20110616
  2. LETAIRIS [Suspect]
     Indication: DRUG ABUSE
  3. LETAIRIS [Suspect]
     Indication: HIV INFECTION

REACTIONS (3)
  - JOINT INJURY [None]
  - GAIT DISTURBANCE [None]
  - FALL [None]
